FAERS Safety Report 5014190-3 (Version None)
Quarter: 2006Q2

REPORT INFORMATION
  Report Type: 
  Country: None (occurrence: None)
  Receive Date: 20060414
  Receipt Date: 20060214
  Transmission Date: 20061013
  Serious: No
  Sender: FDA-Public Use
  Company Number: 2006SP000784

PATIENT
  Age: 62 Year
  Sex: Female
  Weight: 63.5036 kg

DRUGS (9)
  1. LUNESTA [Suspect]
     Indication: INSOMNIA
     Dosage: SEE IMAGE
     Route: 048
     Dates: start: 20051201, end: 20060101
  2. LUNESTA [Suspect]
     Indication: INSOMNIA
     Dosage: SEE IMAGE
     Route: 048
     Dates: start: 20060101
  3. AMBIEN [Concomitant]
  4. GLUCOSAMINE [Concomitant]
  5. VITAMIN E [Concomitant]
  6. MULTIVITAMIN [Concomitant]
  7. TYLENOL (CAPLET) [Concomitant]
  8. CALCIUM GLUCONATE [Concomitant]
  9. IBUPROFEN [Concomitant]

REACTIONS (2)
  - MIDDLE INSOMNIA [None]
  - PAIN IN EXTREMITY [None]
